FAERS Safety Report 6825459-1 (Version None)
Quarter: 2010Q3

REPORT INFORMATION
  Report Type: 
  Country: None (occurrence: None)
  Receive Date: 20100708
  Receipt Date: 20070108
  Transmission Date: 20110219
  Serious: No
  Sender: FDA-Public Use
  Company Number: US-PFIZER INC-2007002745

PATIENT
  Sex: Female
  Weight: 66.68 kg

DRUGS (7)
  1. CHANTIX [Suspect]
     Indication: SMOKING CESSATION THERAPY
     Dates: start: 20070105
  2. SIMVASTATIN [Concomitant]
  3. SYNTHROID [Concomitant]
  4. CELEBREX [Concomitant]
  5. VITAMINS [Concomitant]
  6. CALCIUM CARBONATE [Concomitant]
  7. NEXIUM [Concomitant]
     Indication: GASTROOESOPHAGEAL REFLUX DISEASE

REACTIONS (2)
  - FLATULENCE [None]
  - NAUSEA [None]
